FAERS Safety Report 19353083 (Version 1)
Quarter: 2021Q2

REPORT INFORMATION
  Report Type: Spontaneous
  Country: FR (occurrence: FR)
  Receive Date: 20210601
  Receipt Date: 20210601
  Transmission Date: 20210717
  Serious: Yes (Hospitalization)
  Sender: FDA-Public Use
  Company Number: FR-PFIZER INC-2021572700

PATIENT
  Age: 36 Year
  Sex: Female
  Weight: 54 kg

DRUGS (2)
  1. TRINORDIOL [Suspect]
     Active Substance: ETHINYL ESTRADIOL\LEVONORGESTREL
     Indication: CONTRACEPTION
     Dosage: 1 DF
     Route: 048
  2. CANNABIS [Suspect]
     Active Substance: CANNABIS SATIVA SUBSP. INDICA TOP
     Route: 065

REACTIONS (1)
  - Transient ischaemic attack [Recovered/Resolved]

NARRATIVE: CASE EVENT DATE: 20210325
